FAERS Safety Report 8156928-2 (Version None)
Quarter: 2012Q1

REPORT INFORMATION
  Report Type: 
  Country: None (occurrence: None)
  Receive Date: 20120222
  Receipt Date: 20120214
  Transmission Date: 20120608
  Serious: Yes (Disabling, Other)
  Sender: FDA-Public Use
  Company Number: DE-BRISTOL-MYERS SQUIBB COMPANY-14721849

PATIENT
  Age: 30 Year
  Sex: Male

DRUGS (1)
  1. ABILIFY [Suspect]
     Indication: PSYCHOTIC DISORDER
     Dosage: FOR ABOUT 4-5 MONTHS THE TREATMENT IS DONE

REACTIONS (9)
  - CIRCULATORY COLLAPSE [None]
  - SEMEN VISCOSITY ABNORMAL [None]
  - CONSTIPATION [None]
  - FATIGUE [None]
  - VISUAL ACUITY REDUCED [None]
  - THROMBOSIS [None]
  - HAEMORRHOIDS [None]
  - VISUAL IMPAIRMENT [None]
  - SLEEP DISORDER [None]
